FAERS Safety Report 15371438 (Version 1)
Quarter: 2018Q3

REPORT INFORMATION
  Report Type: Spontaneous
  Country: US (occurrence: US)
  Receive Date: 20180905
  Receipt Date: 20180905
  Transmission Date: 20181010
  Serious: No
  Sender: FDA-Public Use
  Company Number: None

PATIENT
  Age: 41 Year
  Sex: Female
  Weight: 94.95 kg

DRUGS (2)
  1. CITALOPRAM, 20MG [Concomitant]
     Active Substance: CITALOPRAM HYDROBROMIDE
  2. CONTRAVE [Suspect]
     Active Substance: BUPROPION HYDROCHLORIDE\NALTREXONE HYDROCHLORIDE
     Indication: WEIGHT CONTROL
     Dosage: ?          QUANTITY:1 DF DOSAGE FORM;?
     Route: 048
     Dates: start: 20180629, end: 20180728

REACTIONS (3)
  - Aggression [None]
  - Mood swings [None]
  - Anger [None]

NARRATIVE: CASE EVENT DATE: 20180721
